FAERS Safety Report 8815284 (Version 1)
Quarter: 2012Q4

REPORT INFORMATION
  Report Type: Report from Study
  Country: US (occurrence: US)
  Receive Date: 20120928
  Receipt Date: 20120928
  Transmission Date: 20130627
  Serious: Yes (Hospitalization)
  Sender: FDA-Public Use
  Company Number: US-PFIZER INC-2012233820

PATIENT
  Age: 37 Year
  Sex: Female
  Weight: 99.79 kg

DRUGS (2)
  1. SERTRALINE HCL [Suspect]
     Indication: DEPRESSION
     Dosage: 50 mg, 1x/day (1 in 1 D)
     Route: 048
     Dates: start: 20120106
  2. TYLENOL [Concomitant]
     Indication: HEADACHE
     Dosage: 500 mg, as needed
     Route: 048
     Dates: start: 1990

REACTIONS (3)
  - Non-cardiac chest pain [Recovered/Resolved]
  - Dyspnoea [Recovered/Resolved]
  - Panic attack [Recovered/Resolved]
